FAERS Safety Report 24612321 (Version 1)
Quarter: 2024Q4

REPORT INFORMATION
  Report Type: Spontaneous
  Country: US (occurrence: US)
  Receive Date: 20241113
  Receipt Date: 20241113
  Transmission Date: 20250114
  Serious: No
  Sender: AMNEAL
  Company Number: US-AMNEAL PHARMACEUTICALS-2024-AMRX-02004

PATIENT
  Sex: Female

DRUGS (8)
  1. HYDROXYZINE HYDROCHLORIDE [Suspect]
     Active Substance: HYDROXYZINE HYDROCHLORIDE
     Indication: Pruritus
     Dosage: UNK
     Route: 065
  2. OCALIVA [Concomitant]
     Active Substance: OBETICHOLIC ACID
     Indication: Primary biliary cholangitis
     Dosage: 5 MILLIGRAM, DAILY
     Route: 048
     Dates: start: 202203
  3. OCALIVA [Concomitant]
     Active Substance: OBETICHOLIC ACID
     Dosage: 10 MILLIGRAM, DAILY
     Route: 048
  4. AMOXICILLIN [Concomitant]
     Active Substance: AMOXICILLIN
     Indication: Sinusitis
     Dosage: UNK
     Route: 065
  5. ALLEGRA [Concomitant]
     Active Substance: FEXOFENADINE HYDROCHLORIDE
     Indication: Pruritus
     Dosage: UNK
     Route: 065
  6. CERAVE ITCH RELIEF MOISTURIZING [Concomitant]
     Active Substance: PRAMOXINE HYDROCHLORIDE
     Indication: Pruritus
     Dosage: UNK
     Route: 065
  7. OATMEAL [Concomitant]
     Active Substance: OATMEAL
     Indication: Pruritus
     Dosage: UNK
     Route: 065
  8. IVAREST [BENZOCAINE;CALAMINE] [Concomitant]
     Indication: Pruritus
     Dosage: UNK
     Route: 065

REACTIONS (1)
  - Somnolence [Unknown]
